FAERS Safety Report 21464700 (Version 1)
Quarter: 2022Q4

REPORT INFORMATION
  Report Type: Spontaneous
  Country: US (occurrence: None)
  Receive Date: 20221014
  Receipt Date: 20221014
  Transmission Date: 20230113
  Serious: Yes (Death)
  Sender: FDA-Public Use
  Company Number: None

PATIENT
  Age: 77 Year
  Sex: Male
  Weight: 91.76 kg

DRUGS (18)
  1. CAPECITABINE [Suspect]
     Active Substance: CAPECITABINE
     Indication: Oesophageal carcinoma
     Dosage: 1500MG TWICE DAILY ORAL
     Route: 048
  2. AMBIEN [Concomitant]
     Active Substance: ZOLPIDEM TARTRATE
  3. ASPIRIN [Concomitant]
     Active Substance: ASPIRIN
  4. FAMOTIDINE [Concomitant]
     Active Substance: FAMOTIDINE
  5. FENOFIBRATE [Concomitant]
     Active Substance: FENOFIBRATE
  6. FINASTERIDE [Concomitant]
     Active Substance: FINASTERIDE
  7. FISH OIL [Concomitant]
     Active Substance: FISH OIL
  8. LASIX [Concomitant]
     Active Substance: FUROSEMIDE
  9. LATANOPROST [Concomitant]
     Active Substance: LATANOPROST
  10. LISINOPRIL [Concomitant]
     Active Substance: LISINOPRIL
  11. MAGOX [Concomitant]
  12. PROMETHAZINE [Concomitant]
     Active Substance: PROMETHAZINE HYDROCHLORIDE
  13. SIMVASTATIN [Concomitant]
     Active Substance: SIMVASTATIN
  14. SOLIFENACIN [Concomitant]
     Active Substance: SOLIFENACIN
  15. TAMSULOSIN [Concomitant]
     Active Substance: TAMSULOSIN
  16. TOPAMAX [Concomitant]
     Active Substance: TOPIRAMATE
  17. ULTRAM [Concomitant]
     Active Substance: TRAMADOL HYDROCHLORIDE
  18. XARELTO [Concomitant]
     Active Substance: RIVAROXABAN

REACTIONS (1)
  - Death [None]
